APPROVED DRUG PRODUCT: HYDROCODONE BITARTRATE AND ACETAMINOPHEN
Active Ingredient: ACETAMINOPHEN; HYDROCODONE BITARTRATE
Strength: 750MG;7.5MG
Dosage Form/Route: TABLET;ORAL
Application: A040308 | Product #002
Applicant: BARR LABORATORIES INC
Approved: Jul 26, 2000 | RLD: No | RS: No | Type: DISCN